FAERS Safety Report 6834374-9 (Version None)
Quarter: 2010Q3

REPORT INFORMATION
  Report Type: 
  Country: None (occurrence: None)
  Receive Date: 20100712
  Receipt Date: 20070419
  Transmission Date: 20110219
  Serious: No
  Sender: FDA-Public Use
  Company Number: US-PFIZER INC-2007033461

PATIENT
  Sex: Female
  Weight: 60.454 kg

DRUGS (6)
  1. CHANTIX [Suspect]
     Indication: SMOKING CESSATION THERAPY
     Dates: start: 20070315, end: 20070417
  2. EFFEXOR [Concomitant]
     Indication: DEPRESSION
  3. EFFEXOR [Concomitant]
     Indication: ANXIETY
  4. NEURONTIN [Concomitant]
     Indication: HERPES ZOSTER
  5. NEURONTIN [Concomitant]
     Indication: CARPAL TUNNEL SYNDROME
  6. ZOCOR [Concomitant]
     Indication: BLOOD CHOLESTEROL INCREASED

REACTIONS (3)
  - ABDOMINAL PAIN UPPER [None]
  - FLATULENCE [None]
  - MUSCLE SPASMS [None]
